FAERS Safety Report 25853987 (Version 2)
Quarter: 2025Q4

REPORT INFORMATION
  Report Type: Spontaneous
  Country: CA (occurrence: CA)
  Receive Date: 20250926
  Receipt Date: 20251017
  Transmission Date: 20260118
  Serious: Yes (Hospitalization, Other)
  Sender: MYLAN
  Company Number: CA-MYLANLABS-2025M1080397

PATIENT
  Age: 53 Year
  Sex: Male

DRUGS (28)
  1. VALPROIC ACID [Suspect]
     Active Substance: VALPROIC ACID
     Indication: Bipolar I disorder
     Dosage: 500 MILLIGRAM, QD (IN THE MORNING)
  2. VALPROIC ACID [Suspect]
     Active Substance: VALPROIC ACID
     Dosage: 500 MILLIGRAM, QD (IN THE MORNING)
     Route: 048
  3. VALPROIC ACID [Suspect]
     Active Substance: VALPROIC ACID
     Dosage: 500 MILLIGRAM, QD (IN THE MORNING)
     Route: 048
  4. VALPROIC ACID [Suspect]
     Active Substance: VALPROIC ACID
     Dosage: 500 MILLIGRAM, QD (IN THE MORNING)
  5. VALPROIC ACID [Suspect]
     Active Substance: VALPROIC ACID
     Dosage: 1500 MILLIGRAM, HS (BEDTIME)
  6. VALPROIC ACID [Suspect]
     Active Substance: VALPROIC ACID
     Dosage: 1500 MILLIGRAM, HS (BEDTIME)
     Route: 048
  7. VALPROIC ACID [Suspect]
     Active Substance: VALPROIC ACID
     Dosage: 1500 MILLIGRAM, HS (BEDTIME)
  8. VALPROIC ACID [Suspect]
     Active Substance: VALPROIC ACID
     Dosage: 1500 MILLIGRAM, HS (BEDTIME)
     Route: 048
  9. VALPROIC ACID [Suspect]
     Active Substance: VALPROIC ACID
     Dosage: 1000 MILLIGRAM, HS (BEDTIME)
     Route: 048
  10. VALPROIC ACID [Suspect]
     Active Substance: VALPROIC ACID
     Dosage: 1000 MILLIGRAM, HS (BEDTIME)
     Route: 048
  11. VALPROIC ACID [Suspect]
     Active Substance: VALPROIC ACID
     Dosage: 1000 MILLIGRAM, HS (BEDTIME)
  12. VALPROIC ACID [Suspect]
     Active Substance: VALPROIC ACID
     Dosage: 1000 MILLIGRAM, HS (BEDTIME)
  13. ZOPICLONE [Suspect]
     Active Substance: ZOPICLONE
     Indication: Bipolar I disorder
     Dosage: 15 MILLIGRAM, QD (ONCE DAILY)
  14. ZOPICLONE [Suspect]
     Active Substance: ZOPICLONE
     Indication: Sedation
     Dosage: 15 MILLIGRAM, QD (ONCE DAILY)
     Route: 048
  15. ZOPICLONE [Suspect]
     Active Substance: ZOPICLONE
     Dosage: 15 MILLIGRAM, QD (ONCE DAILY)
     Route: 048
  16. ZOPICLONE [Suspect]
     Active Substance: ZOPICLONE
     Dosage: 15 MILLIGRAM, QD (ONCE DAILY)
  17. OLANZAPINE [Suspect]
     Active Substance: OLANZAPINE
     Indication: Bipolar I disorder
     Dosage: 15 MILLIGRAM, BID (TWICE DAILY)
  18. OLANZAPINE [Suspect]
     Active Substance: OLANZAPINE
     Dosage: 15 MILLIGRAM, BID (TWICE DAILY)
  19. OLANZAPINE [Suspect]
     Active Substance: OLANZAPINE
     Dosage: 15 MILLIGRAM, BID (TWICE DAILY)
     Route: 048
  20. OLANZAPINE [Suspect]
     Active Substance: OLANZAPINE
     Dosage: 15 MILLIGRAM, BID (TWICE DAILY)
     Route: 048
  21. OLANZAPINE [Suspect]
     Active Substance: OLANZAPINE
     Dosage: UNK
  22. OLANZAPINE [Suspect]
     Active Substance: OLANZAPINE
     Dosage: UNK
  23. OLANZAPINE [Suspect]
     Active Substance: OLANZAPINE
     Dosage: UNK
     Route: 065
  24. OLANZAPINE [Suspect]
     Active Substance: OLANZAPINE
     Dosage: UNK
     Route: 065
  25. LORAZEPAM [Suspect]
     Active Substance: LORAZEPAM
     Indication: Bipolar I disorder
     Dosage: 2 MILLIGRAM, QD (ONCE DAILY)
  26. LORAZEPAM [Suspect]
     Active Substance: LORAZEPAM
     Indication: Sedation
     Dosage: 2 MILLIGRAM, QD (ONCE DAILY)
     Route: 048
  27. LORAZEPAM [Suspect]
     Active Substance: LORAZEPAM
     Dosage: 2 MILLIGRAM, QD (ONCE DAILY)
     Route: 048
  28. LORAZEPAM [Suspect]
     Active Substance: LORAZEPAM
     Dosage: 2 MILLIGRAM, QD (ONCE DAILY)

REACTIONS (13)
  - Cognitive disorder [Recovering/Resolving]
  - Insomnia [Recovering/Resolving]
  - Confusional state [Recovering/Resolving]
  - Consciousness fluctuating [Recovering/Resolving]
  - Abnormal behaviour [Recovering/Resolving]
  - Cerebral disorder [Recovering/Resolving]
  - Speech latency [Recovering/Resolving]
  - Aphasia [Recovering/Resolving]
  - Delirium [Recovering/Resolving]
  - Cerebellar atrophy [Recovering/Resolving]
  - Toxic encephalopathy [Recovered/Resolved]
  - Altered state of consciousness [Recovering/Resolving]
  - Treatment noncompliance [Unknown]
